FAERS Safety Report 7481200-3 (Version None)
Quarter: 2011Q2

REPORT INFORMATION
  Report Type: 
  Country: None (occurrence: None)
  Receive Date: 20110512
  Receipt Date: 20110512
  Transmission Date: 20111010
  Serious: No
  Sender: FDA-Public Use
  Company Number: None

PATIENT
  Age: 31 Year
  Sex: Female
  Weight: 77.1115 kg

DRUGS (1)
  1. LO LOESTRIN FE [Suspect]
     Dosage: 1 PILL A DAY  END OF MARCH TO NEAR END OF APRIL

REACTIONS (2)
  - ABDOMINAL PAIN [None]
  - DIARRHOEA [None]
